FAERS Safety Report 10047511 (Version 1)
Quarter: 2014Q1

REPORT INFORMATION
  Report Type: Spontaneous
  Country: US (occurrence: None)
  Receive Date: 20140327
  Receipt Date: 20140327
  Transmission Date: 20141002
  Serious: Yes (Hospitalization)
  Sender: FDA-Public Use
  Company Number: UTC-046072

PATIENT
  Age: 65 Year
  Sex: Male
  Weight: 60.78 kg

DRUGS (1)
  1. REMODULIN [Suspect]
     Indication: COR PULMONALE CHRONIC
     Dosage: 0.016 UG/KG, 1 IN 1 MIN
     Route: 058
     Dates: start: 20131002

REACTIONS (2)
  - Drug dose omission [None]
  - Device malfunction [None]
